FAERS Safety Report 5941302-7 (Version None)
Quarter: 2008Q4

REPORT INFORMATION
  Report Type: 
  Country: None (occurrence: None)
  Receive Date: 20081105
  Receipt Date: 20081027
  Transmission Date: 20090506
  Serious: Yes (Hospitalization)
  Sender: FDA-Public Use
  Company Number: GB-TEVA-179572ISR

PATIENT
  Age: 72 Year
  Sex: Female

DRUGS (4)
  1. PREDNISOLONE [Suspect]
  2. PREDNISOLONE [Suspect]
  3. CYCLOPHOSPHAMIDE [Suspect]
  4. METHYLPREDNISOLONE 16MG TAB [Suspect]
     Route: 048

REACTIONS (3)
  - AMNESIA [None]
  - DIFFUSE LARGE B-CELL LYMPHOMA [None]
  - DYSPHASIA [None]
